FAERS Safety Report 9690071 (Version 2)
Quarter: 2014Q1

REPORT INFORMATION
  Report Type: Report from Study
  Country: KR (occurrence: KR)
  Receive Date: 20131115
  Receipt Date: 20140224
  Transmission Date: 20141002
  Serious: Yes (Hospitalization)
  Sender: FDA-Public Use
  Company Number: KR-JNJFOC-20131105660

PATIENT
  Age: 16 Year
  Sex: Female
  Weight: 43.6 kg

DRUGS (9)
  1. REMICADE [Suspect]
     Indication: CROHN^S DISEASE
     Route: 042
     Dates: end: 20131101
  2. REMICADE [Suspect]
     Indication: CROHN^S DISEASE
     Dosage: 4TH ADMINISTRATION
     Route: 042
     Dates: start: 20130524
  3. REMICADE [Suspect]
     Indication: CROHN^S DISEASE
     Route: 042
     Dates: start: 20130225
  4. FERROUS SULFATE [Concomitant]
     Indication: IRON DEFICIENCY ANAEMIA
     Dosage: 3 TABLET
     Route: 048
  5. CALCIUM [Concomitant]
     Indication: OSTEOPOROSIS
     Route: 048
     Dates: start: 20130125
  6. NISOLONE [Concomitant]
     Indication: CROHN^S DISEASE
     Dosage: 2 TABLETS
     Route: 048
     Dates: start: 20130127, end: 20130224
  7. PENTASA [Concomitant]
     Indication: CROHN^S DISEASE
     Dosage: 2 TABLETS
     Route: 048
  8. FOLIC ACID [Concomitant]
     Indication: FOLATE DEFICIENCY
     Dosage: 0.5 TABLET
     Route: 048
     Dates: start: 20130125
  9. SOMATROPINE [Concomitant]
     Dosage: 23 MG, FREQUENCY: 1/7
     Route: 058
     Dates: start: 20130218

REACTIONS (1)
  - Crohn^s disease [Recovered/Resolved]
